FAERS Safety Report 5897284-X (Version None)
Quarter: 2008Q3

REPORT INFORMATION
  Report Type: 
  Country: None (occurrence: None)
  Receive Date: 20080924
  Receipt Date: 20080924
  Transmission Date: 20090109
  Serious: Yes (Other)
  Sender: FDA-Public Use
  Company Number: None

PATIENT
  Sex: Female
  Weight: 52.6173 kg

DRUGS (1)
  1. MICROGESTIN FE 1.5/30 [Suspect]
     Dosage: 1 A DAY 28 DAYS
     Dates: start: 20080101

REACTIONS (1)
  - METRORRHAGIA [None]
